FAERS Safety Report 4387915-8 (Version None)
Quarter: 2004Q2

REPORT INFORMATION
  Report Type: 
  Country: None (occurrence: None)
  Receive Date: 20040607
  Receipt Date: 20031202
  Transmission Date: 20050107
  Serious: Yes (Death)
  Sender: FDA-Public Use
  Company Number: 353308

PATIENT
  Age: 38 Year
  Sex: Female

DRUGS (3)
  1. ACCUTANE [Suspect]
     Indication: CERVIX CARCINOMA
     Dosage: ORAL
     Route: 048
     Dates: start: 19991029
  2. INTERFERON ALFA-2A (INTERFERON ALFA-2A) [Concomitant]
  3. CHEMOTHERAPY (ANTINEOPLASTIC AGENT NOS) [Concomitant]

REACTIONS (2)
  - CERVIX CARCINOMA [None]
  - MALIGNANT NEOPLASM PROGRESSION [None]
